FAERS Safety Report 9843951 (Version 1)
Quarter: 2013Q4

REPORT INFORMATION
  Report Type: Spontaneous
  Country: US (occurrence: None)
  Receive Date: 20131223
  Receipt Date: 20131223
  Transmission Date: 20140711
  Serious: No
  Sender: FDA-Public Use
  Company Number: 1000049856

PATIENT
  Age: 58 Year
  Sex: Male

DRUGS (7)
  1. LINZESS (LINACLOTIDE) (CAPSULES) [Suspect]
     Indication: CONSTIPATION
     Dosage: 290 MCG AS NEEDED (1 AS NEEDED)
  2. FENTANYL (FENTANYL) (FENTANYL) [Concomitant]
  3. DILAUDID (HYDROMORPHONE HYDROCHLORIDE) (HYDROMORPHONE HYDROCHLORIDE) [Concomitant]
  4. BACLOFEN (BACLOFEN) (BACLOFEN) [Concomitant]
  5. NORFLEX (ORPHENADRINE CITRATE) (ORPHENADRINE CITRATE) [Concomitant]
  6. HALCION (TRIAZOLAM) (TRIAZOLAM) [Concomitant]
  7. VALIUM DIAZEPAM) (DIAZEPAM) [Concomitant]

REACTIONS (2)
  - Nightmare [None]
  - Myalgia [None]
